FAERS Safety Report 7097450-4 (Version None)
Quarter: 2010Q4

REPORT INFORMATION
  Report Type: 
  Country: None (occurrence: None)
  Receive Date: 20101111
  Receipt Date: 20101109
  Transmission Date: 20110411
  Serious: Yes (Hospitalization)
  Sender: FDA-Public Use
  Company Number: JP-PFIZER INC-2010078616

PATIENT
  Age: 81 Year
  Sex: Female
  Weight: 38.4 kg

DRUGS (4)
  1. SUNITINIB MALATE [Suspect]
     Indication: RENAL CELL CARCINOMA
     Dosage: 37.5 MG, 1X/DAY
     Route: 048
     Dates: start: 20090423, end: 20090501
  2. MAGNESIUM OXIDE [Concomitant]
     Dosage: 500 MG, 3X/DAY
     Route: 048
  3. LASIX [Concomitant]
     Dosage: 20 MG, 1X/DAY
     Route: 048
  4. AMLODIPINE [Concomitant]
     Dosage: 5 MG, 1X/DAY
     Route: 048

REACTIONS (4)
  - HYPONATRAEMIA [None]
  - INFECTION [None]
  - LOCALISED OEDEMA [None]
  - WEIGHT INCREASED [None]
